FAERS Safety Report 5274961-5 (Version None)
Quarter: 2007Q1

REPORT INFORMATION
  Report Type: 
  Country: None (occurrence: None)
  Receive Date: 20061207
  Receipt Date: 20050826
  Transmission Date: 20070707
  Serious: Yes (Other)
  Sender: FDA-Public Use
  Company Number: 2005UW12681

PATIENT

DRUGS (2)
  1. TOPROL-XL [Suspect]
     Dosage: 50 MG PO
     Route: 048
  2. TOPAMAX [Suspect]
     Dosage: 25 MG

REACTIONS (3)
  - BRADYCARDIA [None]
  - MEDICATION ERROR [None]
  - TACHYCARDIA [None]
